FAERS Safety Report 4456665-1 (Version None)
Quarter: 2004Q3

REPORT INFORMATION
  Report Type: 
  Country: None (occurrence: None)
  Receive Date: 20040921
  Receipt Date: 20040908
  Transmission Date: 20050211
  Serious: Yes (Other)
  Sender: FDA-Public Use
  Company Number: 186825

PATIENT
  Age: 44 Year
  Sex: Female
  Weight: 45.3597 kg

DRUGS (2)
  1. AVONEX [Suspect]
     Indication: MULTIPLE SCLEROSIS
     Dosage: 30 MCG QW IM
     Route: 030
     Dates: start: 20030916, end: 20030930
  2. AVONEX [Suspect]
     Indication: MULTIPLE SCLEROSIS
     Dosage: 30 MCG QW IM
     Route: 030
     Dates: start: 20031021

REACTIONS (11)
  - ARTHRALGIA [None]
  - HAEMATEMESIS [None]
  - HEADACHE [None]
  - INFLUENZA LIKE ILLNESS [None]
  - INJECTION SITE HAEMORRHAGE [None]
  - INJECTION SITE PAIN [None]
  - MUSCULOSKELETAL STIFFNESS [None]
  - PAIN [None]
  - RASH PAPULAR [None]
  - RASH PRURITIC [None]
  - VOMITING [None]
